APPROVED DRUG PRODUCT: TROSPIUM CHLORIDE
Active Ingredient: TROSPIUM CHLORIDE
Strength: 60MG
Dosage Form/Route: CAPSULE, EXTENDED RELEASE;ORAL
Application: A091289 | Product #001 | TE Code: AB
Applicant: ACTAVIS LABORATORIES FL INC
Approved: Oct 12, 2012 | RLD: No | RS: Yes | Type: RX